FAERS Safety Report 8034283-6 (Version None)
Quarter: 2012Q1

REPORT INFORMATION
  Report Type: 
  Country: None (occurrence: None)
  Receive Date: 20120110
  Receipt Date: 20120103
  Transmission Date: 20120608
  Serious: Yes (Hospitalization, Other)
  Sender: FDA-Public Use
  Company Number: PHHY2010CA01918

PATIENT
  Sex: Female

DRUGS (12)
  1. PREDNISONE TAB [Concomitant]
     Dosage: 5 MG, QD
  2. SYNTHROID [Concomitant]
     Dosage: 0.125 MG, QD
  3. DESMOPRESSIN ACETATE [Concomitant]
     Indication: DIABETES INSIPIDUS
     Dosage: 0.3 MG, TID
  4. LAMOTRIGINE [Concomitant]
     Dosage: 25 MG, BID
  5. LAMOTRIGINE [Concomitant]
     Dosage: 125 MG, BID
  6. ESTROGEL [Concomitant]
     Dosage: 2 DF, DAILY
  7. DILANTIN [Concomitant]
     Dosage: 250 MG, QD
  8. KEPPRA [Concomitant]
     Indication: PETIT MAL EPILEPSY
     Dosage: 500 MG, TID
  9. CRESTOR [Concomitant]
     Dosage: 20 MG, DAILY
  10. SANDOSTATIN LAR [Suspect]
     Indication: PITUITARY TUMOUR
     Dosage: 30 MG, QMO
     Route: 030
     Dates: start: 20000501
  11. PROMETRIUM [Concomitant]
     Dosage: 100 MG, DAILY
  12. DILANTIN [Concomitant]
     Dosage: 300 MG, DAILY

REACTIONS (5)
  - GRAND MAL CONVULSION [None]
  - PETIT MAL EPILEPSY [None]
  - GLOSSODYNIA [None]
  - PAIN [None]
  - CONVULSION [None]
